FAERS Safety Report 10304792 (Version 1)
Quarter: 2014Q3

REPORT INFORMATION
  Report Type: Spontaneous
  Country: US (occurrence: None)
  Receive Date: 20140710
  Receipt Date: 20140710
  Transmission Date: 20150326
  Serious: Yes (Disabling)
  Sender: FDA-Public Use
  Company Number: None

PATIENT
  Age: 60 Year
  Sex: Male
  Weight: 90.72 kg

DRUGS (3)
  1. CHLORTHALIDONE. [Suspect]
     Active Substance: CHLORTHALIDONE
  2. LOSARTAN [Suspect]
     Active Substance: LOSARTAN
  3. STATIN [Suspect]
     Active Substance: UNSPECIFIED INGREDIENT

REACTIONS (10)
  - Lethargy [None]
  - Confusional state [None]
  - Irritability [None]
  - Headache [None]
  - Asthenia [None]
  - Weight increased [None]
  - Respiratory disorder [None]
  - Painful defaecation [None]
  - Dyspnoea [None]
  - Diabetes mellitus [None]
